FAERS Safety Report 7406884-7 (Version None)
Quarter: 2011Q2

REPORT INFORMATION
  Report Type: 
  Country: None (occurrence: None)
  Receive Date: 20110411
  Receipt Date: 20110330
  Transmission Date: 20111010
  Serious: Yes (Other)
  Sender: FDA-Public Use
  Company Number: US-PFIZER INC-2011070840

PATIENT

DRUGS (1)
  1. PRISTIQ [Suspect]
     Dosage: 50MG QD ALTERNATE 100 MG QD EVERY OTHER DAY

REACTIONS (1)
  - ALCOHOLISM [None]
